FAERS Safety Report 4780643-6 (Version None)
Quarter: 2005Q3

REPORT INFORMATION
  Report Type: 
  Country: None (occurrence: None)
  Receive Date: 20050926
  Receipt Date: 20000913
  Transmission Date: 20060218
  Serious: Yes (Other)
  Sender: FDA-Public Use
  Company Number: 163-20785-05090157

PATIENT
  Age: 78 Year
  Sex: Female

DRUGS (16)
  1. THALOMID [Suspect]
     Indication: MULTIPLE MYELOMA
     Dosage: 100 MG, DAILY, ORAL
     Route: 048
     Dates: start: 20050501, end: 20050601
  2. THALOMID [Suspect]
     Indication: MULTIPLE MYELOMA
     Dosage: 100 MG, DAILY, ORAL
     Route: 048
     Dates: end: 20050903
  3. THALOMID [Suspect]
     Indication: MULTIPLE MYELOMA
     Dosage: 100 MG, DAILY, ORAL
     Route: 048
     Dates: start: 20050905, end: 20050911
  4. THALOMID [Suspect]
     Indication: MULTIPLE MYELOMA
     Dosage: 100 MG, DAILY, ORAL
     Route: 048
     Dates: start: 20050913
  5. DEXAMETHASONE [Suspect]
     Indication: MULTIPLE MYELOMA
     Dosage: SEE IMAGE
     Route: 048
     Dates: end: 20050801
  6. DEXAMETHASONE [Suspect]
     Indication: MULTIPLE MYELOMA
     Dosage: SEE IMAGE
     Route: 048
     Dates: start: 20050501
  7. RADIATION THERAPY [Suspect]
     Indication: BACK PAIN
     Dates: start: 20050601
  8. HYDROMORPHONE HCL [Concomitant]
  9. WARFARIN SODIUM [Concomitant]
  10. ZESTORETIC [Concomitant]
  11. AMBIEN [Concomitant]
  12. FLURAZEPAM [Concomitant]
  13. PROTONIX [Concomitant]
  14. ZOMETA [Concomitant]
  15. SMZ /TMP/DS (BACTRIM) (TABLETS) [Concomitant]
  16. XALATAN [Concomitant]

REACTIONS (7)
  - BACK PAIN [None]
  - CATARACT OPERATION [None]
  - CONSTIPATION [None]
  - HYPOAESTHESIA ORAL [None]
  - NEUROPATHY PERIPHERAL [None]
  - VISUAL DISTURBANCE [None]
  - WHITE BLOOD CELL DISORDER [None]
